FAERS Safety Report 5869566-9 (Version None)
Quarter: 2008Q3

REPORT INFORMATION
  Report Type: 
  Country: None (occurrence: None)
  Receive Date: 20080904
  Receipt Date: 20080826
  Transmission Date: 20090109
  Serious: Yes (Other)
  Sender: FDA-Public Use
  Company Number: ES-WYE-G00507807

PATIENT
  Age: 45 Year
  Sex: Male

DRUGS (4)
  1. VANDRAL RETARD [Suspect]
     Indication: DEPRESSION
     Route: 048
     Dates: start: 20050701
  2. LAMOTRIGINE [Concomitant]
     Dates: start: 20051201
  3. ABILIFY [Interacting]
     Dates: start: 20051201, end: 20080227
  4. ABILIFY [Interacting]
     Dates: start: 20080228, end: 20080401

REACTIONS (2)
  - DRUG INTERACTION [None]
  - HYPERHIDROSIS [None]
